FAERS Safety Report 6781467-0 (Version None)
Quarter: 2010Q2

REPORT INFORMATION
  Report Type: 
  Country: None (occurrence: None)
  Receive Date: 20100621
  Receipt Date: 20100608
  Transmission Date: 20101027
  Serious: Yes (Other)
  Sender: FDA-Public Use
  Company Number: US-BAYER-201024975NA

PATIENT
  Sex: Female

DRUGS (1)
  1. MIRENA [Suspect]
     Indication: DRUG USE FOR UNKNOWN INDICATION
     Dosage: IT WAS INSERTED 4 WEEKS POSTPARTUM
     Route: 015
     Dates: end: 20100501

REACTIONS (8)
  - ABDOMINAL DISTENSION [None]
  - ANXIETY [None]
  - BLOOD URINE PRESENT [None]
  - CONSTIPATION [None]
  - DEPRESSION [None]
  - MENORRHAGIA [None]
  - SUICIDAL IDEATION [None]
  - WEIGHT INCREASED [None]
